FAERS Safety Report 8394715-0 (Version None)
Quarter: 2012Q2

REPORT INFORMATION
  Report Type: 
  Country: None (occurrence: None)
  Receive Date: 20120530
  Receipt Date: 20120517
  Transmission Date: 20120825
  Serious: Yes (Other)
  Sender: FDA-Public Use
  Company Number: IE-PFIZER INC-2012109689

PATIENT
  Age: 48 Year
  Sex: Male

DRUGS (4)
  1. FUSIDIC ACID [Interacting]
     Indication: STAPHYLOCOCCAL INFECTION
     Dosage: 500 MG, THREE TIMES A DAY
  2. ATORVASTATIN CALCIUM [Suspect]
     Dosage: 40 MG, DAILY
  3. LINEZOLID [Concomitant]
     Indication: STAPHYLOCOCCAL INFECTION
     Dosage: 600 MG, TWICE A DAY
  4. ASPIRIN [Concomitant]
     Dosage: 75 MG, ONCE A DAY

REACTIONS (4)
  - RHABDOMYOLYSIS [None]
  - DRUG INTERACTION [None]
  - ASPARTATE AMINOTRANSFERASE INCREASED [None]
  - ALANINE AMINOTRANSFERASE INCREASED [None]
